FAERS Safety Report 25049828 (Version 1)
Quarter: 2025Q1

REPORT INFORMATION
  Report Type: Report from Study
  Country: TR (occurrence: TR)
  Receive Date: 20250307
  Receipt Date: 20250307
  Transmission Date: 20250409
  Serious: Yes (Hospitalization, Other)
  Sender: RANBAXY
  Company Number: TR-SUN PHARMACEUTICAL INDUSTRIES LTD-2025R1-497340

PATIENT
  Age: 57 Year
  Sex: Male
  Weight: 72 kg

DRUGS (9)
  1. CAPECITABINE [Suspect]
     Active Substance: CAPECITABINE
     Indication: Adenocarcinoma gastric
     Dosage: 1000 MILLIGRAM, BID
     Route: 048
     Dates: start: 20240605, end: 20240710
  2. CAPECITABINE [Suspect]
     Active Substance: CAPECITABINE
     Dosage: 1000 MILLIGRAM, BID
     Route: 048
  3. LOPERAMIDE [Suspect]
     Active Substance: LOPERAMIDE
     Indication: Diarrhoea
     Dosage: 4 MILLIGRAM, BID
     Route: 048
     Dates: start: 20240605, end: 20240702
  4. OXALIPLATIN [Suspect]
     Active Substance: OXALIPLATIN
     Indication: Adenocarcinoma gastric
     Route: 042
     Dates: start: 20240605, end: 20240626
  5. Ater [Concomitant]
     Indication: Product used for unknown indication
     Route: 065
  6. BELOC [Concomitant]
     Indication: Coronary artery disease
     Route: 065
     Dates: start: 202110
  7. ENOXAPARIN SODIUM [Concomitant]
     Active Substance: ENOXAPARIN SODIUM
     Indication: Coronary artery disease
     Route: 065
     Dates: start: 20240515
  8. Neacset [Concomitant]
     Indication: Product used for unknown indication
     Route: 065
  9. REFLA [Concomitant]
     Indication: Product used for unknown indication
     Route: 065
     Dates: start: 20240702

REACTIONS (4)
  - Fatigue [Recovered/Resolved]
  - Vomiting [Recovered/Resolved]
  - Hypercalcaemia [Recovered/Resolved]
  - Nausea [Recovered/Resolved]

NARRATIVE: CASE EVENT DATE: 20240716
